FAERS Safety Report 21774208 (Version 1)
Quarter: 2022Q4

REPORT INFORMATION
  Report Type: Spontaneous
  Country: IT (occurrence: IT)
  Receive Date: 20221224
  Receipt Date: 20221224
  Transmission Date: 20230113
  Serious: Yes (Other)
  Sender: FDA-Public Use
  Company Number: None

PATIENT
  Age: 58 Year
  Sex: Female
  Weight: 75 kg

DRUGS (3)
  1. OTEZLA [Suspect]
     Active Substance: APREMILAST
     Indication: Psoriasis
     Dosage: TITRATION OF THE DRUG FROM 10 MG TO 30 MG AS FORESEEN BY THE SPC IN THE FIRST TWO WEEKS OF THERAPY,
     Route: 048
     Dates: start: 20220527, end: 20220722
  2. ASPIRIN [Concomitant]
     Active Substance: ASPIRIN
     Indication: Diplopia
     Dosage: 100 MG/DAY
     Route: 048
  3. LEVOTHYROXINE SODIUM [Concomitant]
     Active Substance: LEVOTHYROXINE SODIUM
     Indication: Autoimmune hypothyroidism
     Dosage: 125 MICROGRAMS/DAY
     Route: 048

REACTIONS (1)
  - Thrombocytopenia [Recovered/Resolved]

NARRATIVE: CASE EVENT DATE: 20220701
